FAERS Safety Report 6104681-6 (Version None)
Quarter: 2009Q1

REPORT INFORMATION
  Report Type: 
  Country: None (occurrence: None)
  Receive Date: 20090303
  Receipt Date: 20090223
  Transmission Date: 20090719
  Serious: Yes (Other)
  Sender: FDA-Public Use
  Company Number: 201795

PATIENT
  Age: 42 Year
  Sex: Female

DRUGS (3)
  1. BUPIVACAINE HCL [Suspect]
     Indication: LOCAL ANAESTHESIA
  2. LIDOCAINE AND EPINEPHRINE [Suspect]
     Indication: LOCAL ANAESTHESIA
  3. (HYPNOTICS AND SEDATIVES) [Concomitant]

REACTIONS (3)
  - ANAESTHETIC COMPLICATION [None]
  - DRUG INTERACTION [None]
  - OBTURATOR NEUROPATHY [None]
